FAERS Safety Report 6767379-7 (Version None)
Quarter: 2010Q2

REPORT INFORMATION
  Report Type: 
  Country: None (occurrence: None)
  Receive Date: 20100611
  Receipt Date: 20100611
  Transmission Date: 20101027
  Serious: No
  Sender: FDA-Public Use
  Company Number: None

PATIENT
  Age: 69 Year
  Sex: Female
  Weight: 61.2356 kg

DRUGS (1)
  1. AQUA-BAM -PAMABROM- 50MG BLAIREX LABORATORIES INC. [Suspect]
     Indication: JOINT SWELLING
     Dosage: 50MG TOOK TWO TABLETS PO, 2 DOSES
     Route: 048
     Dates: start: 20100608, end: 20100609

REACTIONS (4)
  - BLISTER [None]
  - DRUG ERUPTION [None]
  - HYPERSENSITIVITY [None]
  - PRURITUS [None]
